FAERS Safety Report 17684145 (Version 1)
Quarter: 2020Q2

REPORT INFORMATION
  Report Type: Report from Study
  Country: FR (occurrence: FR)
  Receive Date: 20200420
  Receipt Date: 20200420
  Transmission Date: 20200714
  Serious: Yes (Other)
  Sender: FDA-Public Use
  Company Number: FR-ROCHE-2583295

PATIENT
  Age: 49 Year
  Sex: Female

DRUGS (2)
  1. NAVELBINE [Suspect]
     Active Substance: VINORELBINE TARTRATE
     Indication: NON-SMALL CELL LUNG CANCER
     Dosage: C1: 27/02/2019; C2: 20/03/2019; C3: 10/04/2019; C4: 30/04/2019; C5: 22/05/2019; C6: 12/06/2019; C7:
     Route: 048
     Dates: start: 20190227
  2. ATEZOLIZUMAB. [Suspect]
     Active Substance: ATEZOLIZUMAB
     Indication: NON-SMALL CELL LUNG CANCER
     Dosage: C1: 27/02/2019; C2: 20/03/2019; C3: 10/04/2019; C4: 30/04/2019; C5: 22/05/2019; C6: 12/06/2019; C7:
     Route: 042
     Dates: start: 20190227, end: 20200311

REACTIONS (1)
  - Neoplasm progression [Not Recovered/Not Resolved]

NARRATIVE: CASE EVENT DATE: 20200409
